FAERS Safety Report 17559466 (Version 2)
Quarter: 2020Q2

REPORT INFORMATION
  Report Type: Spontaneous
  Country: CA (occurrence: CA)
  Receive Date: 20200319
  Receipt Date: 20200403
  Transmission Date: 20200713
  Serious: Yes (Other)
  Sender: FDA-Public Use
  Company Number: CA-CELLTRION INC.-2020CA020495

PATIENT

DRUGS (4)
  1. INFLIXIMAB PFIZER (UNKNOWN) [Suspect]
     Active Substance: INFLIXIMAB
     Dosage: 700 MG, EVERY 6 WEEKS
     Dates: start: 2008
  2. INFLIXIMAB PFIZER (UNKNOWN) [Suspect]
     Active Substance: INFLIXIMAB
     Dosage: 500 MG, EVERY 6 WEEKS
     Dates: start: 2016
  3. PREDNISONE. [Concomitant]
     Active Substance: PREDNISONE
     Dosage: UNK (STOP DATE: 2009)
  4. REMICADE [Concomitant]
     Active Substance: INFLIXIMAB
     Dosage: 500 MG, EVERY 6 WEEKS
     Route: 042
     Dates: start: 2016

REACTIONS (9)
  - Asthma [Unknown]
  - Oral candidiasis [Unknown]
  - Large intestinal stenosis [Unknown]
  - Pseudopolyp [Unknown]
  - Adhesion [Unknown]
  - Clostridium difficile infection [Unknown]
  - Off label use [Unknown]
  - Diarrhoea [Unknown]
  - Arthralgia [Unknown]

NARRATIVE: CASE EVENT DATE: 2008
